FAERS Safety Report 5132485-X (Version None)
Quarter: 2006Q4

REPORT INFORMATION
  Report Type: 
  Country: None (occurrence: None)
  Receive Date: 20061019
  Receipt Date: 20061019
  Transmission Date: 20070319
  Serious: Yes (Life-Threatening, Disabling, Other)
  Sender: FDA-Public Use
  Company Number: None

PATIENT
  Sex: Female
  Weight: 82.1011 kg

DRUGS (2)
  1. KETOROLAC TROMETHAMINE [Suspect]
  2. MOTRIN [Concomitant]

REACTIONS (5)
  - AMNESIA [None]
  - DRUG HYPERSENSITIVITY [None]
  - MEDICATION ERROR [None]
  - SIMILAR REACTION ON PREVIOUS EXPOSURE TO DRUG [None]
  - SWOLLEN TONGUE [None]
